FAERS Safety Report 18089635 (Version 2)
Quarter: 2020Q3

REPORT INFORMATION
  Report Type: Spontaneous
  Country: IT (occurrence: IT)
  Receive Date: 20200729
  Receipt Date: 20200928
  Transmission Date: 20201103
  Serious: Yes (Disabling)
  Sender: FDA-Public Use
  Company Number: IT-009507513-2007ITA010731

PATIENT
  Age: 28 Year
  Sex: Male
  Weight: 80 kg

DRUGS (5)
  1. PROPECIA [Suspect]
     Active Substance: FINASTERIDE
     Indication: ANDROGENETIC ALOPECIA
     Dosage: 1 MG/ DAY
     Route: 048
     Dates: start: 201107, end: 201504
  2. CIALIS [Suspect]
     Active Substance: TADALAFIL
     Dosage: 10 MG OCCASIONALLY OR 5 MG FOR PROLONGED PERIODS OF AT LEAST ONE MONTH
     Route: 048
     Dates: start: 201708
  3. CIALIS [Suspect]
     Active Substance: TADALAFIL
     Indication: ERECTILE DYSFUNCTION
     Dosage: 10 MG OCCASIONALLY OR 5 MG FOR PROLONGED PERIODS OF AT LEAST ONE MONTH
     Route: 048
     Dates: start: 201609, end: 201610
  4. CIALIS [Suspect]
     Active Substance: TADALAFIL
     Dosage: 10 MG OCCASIONALLY OR 5 MG FOR PROLONGED PERIODS OF AT LEAST ONE MONTH
     Route: 048
     Dates: start: 201705, end: 201706
  5. SPEDRA [Suspect]
     Active Substance: AVANAFIL
     Indication: ERECTILE DYSFUNCTION
     Dosage: UNK

REACTIONS (13)
  - Post 5-alpha-reductase inhibitor syndrome [Not Recovered/Not Resolved]
  - Malnutrition [Unknown]
  - Ligament rupture [Unknown]
  - Stress at work [Unknown]
  - Vitamin D deficiency [Unknown]
  - Libido increased [Unknown]
  - Blood testosterone free decreased [Unknown]
  - Abdominal pain [Unknown]
  - Vitamin B12 deficiency [Unknown]
  - Headache [Unknown]
  - Fasting [Unknown]
  - Weight decreased [Unknown]
  - Weight increased [Unknown]

NARRATIVE: CASE EVENT DATE: 2011
